FAERS Safety Report 8858363 (Version 1)
Quarter: 2012Q4

REPORT INFORMATION
  Report Type: 
  Country: US (occurrence: US)
  Receive Date: 20121024
  Receipt Date: 20121024
  Transmission Date: 20130627
  Serious: No
  Sender: FDA-Public Use
  Company Number: US-AMGEN-USASP2011062080

PATIENT
  Age: 60 Year
  Sex: Male

DRUGS (7)
  1. ENBREL [Suspect]
     Indication: PRODUCT USED FOR UNKNOWN INDICATION
     Dosage: 50 mg, qwk
  2. FUROSEMIDE [Concomitant]
     Dosage: 20 mg, UNK
  3. PREDNISONE [Concomitant]
     Dosage: 2.5 mg, UNK
  4. KLOR-CON [Concomitant]
  5. FISH OIL [Concomitant]
  6. ASA [Concomitant]
  7. ACTOPLUS MET [Concomitant]

REACTIONS (1)
  - Cellulitis [Recovering/Resolving]
